FAERS Safety Report 20095713 (Version 1)
Quarter: 2021Q4

REPORT INFORMATION
  Report Type: Spontaneous
  Country: US (occurrence: US)
  Receive Date: 20211122
  Receipt Date: 20211122
  Transmission Date: 20220303
  Serious: Yes (Hospitalization, Other)
  Sender: FDA-Public Use
  Company Number: US-AVET LIFESCIENCES LTD-2021-AVET-000055

PATIENT
  Age: 38 Year
  Sex: Female

DRUGS (5)
  1. TEMOZOLOMIDE [Suspect]
     Active Substance: TEMOZOLOMIDE
     Indication: Pineal parenchymal neoplasm malignant
     Dosage: ADJUVANT  COMPLETED 3 TO 4 CYCLES
  2. TEMOZOLOMIDE [Suspect]
     Active Substance: TEMOZOLOMIDE
     Dosage: CORRECT DOSE AT 14 MONTHS
  3. TEMOZOLOMIDE [Suspect]
     Active Substance: TEMOZOLOMIDE
     Dosage: LEPTOMENINGEAL ENHANCEMENT AT 22 MONTHS
  4. TEMOZOLOMIDE [Suspect]
     Active Substance: TEMOZOLOMIDE
     Dosage: METRONOMIC AT 27 MONTHS
  5. BEVACIZUMAB [Suspect]
     Active Substance: BEVACIZUMAB
     Indication: Pineal parenchymal neoplasm malignant
     Dosage: 29 MONTH

REACTIONS (5)
  - Hypernatraemia [Unknown]
  - Fatigue [Unknown]
  - Nausea [Unknown]
  - Hypopituitarism [Unknown]
  - Diabetes insipidus [Unknown]

NARRATIVE: CASE EVENT DATE: 20210301
